FAERS Safety Report 5215603-4 (Version None)
Quarter: 2007Q1

REPORT INFORMATION
  Report Type: 
  Country: None (occurrence: None)
  Receive Date: 20070123
  Receipt Date: 20070110
  Transmission Date: 20070707
  Serious: Yes (Hospitalization, Other)
  Sender: FDA-Public Use
  Company Number: PHEH2007US00649

PATIENT
  Age: 58 Year
  Sex: Male

DRUGS (7)
  1. CLOZARIL [Suspect]
     Indication: SCHIZOPHRENIA
     Dosage: 125 MG, TID
     Route: 048
     Dates: start: 19910101, end: 20061230
  2. CHEMOTHERAPEUTICS,OTHER [Concomitant]
  3. PROTONIX [Concomitant]
  4. STOOL SOFTENER [Concomitant]
  5. ANTIBIOTICS [Concomitant]
  6. RADIATION THERAPY [Concomitant]
  7. CLOZAPINE [Suspect]

REACTIONS (6)
  - AGRANULOCYTOSIS [None]
  - NEUTROPHIL COUNT DECREASED [None]
  - NEUTROPHIL COUNT INCREASED [None]
  - SMALL CELL LUNG CANCER STAGE UNSPECIFIED [None]
  - WHITE BLOOD CELL COUNT DECREASED [None]
  - WHITE BLOOD CELL COUNT INCREASED [None]
